FAERS Safety Report 7707843-7 (Version None)
Quarter: 2011Q3

REPORT INFORMATION
  Report Type: 
  Country: None (occurrence: None)
  Receive Date: 20110824
  Receipt Date: 20110811
  Transmission Date: 20111222
  Serious: Yes (Disabling)
  Sender: FDA-Public Use
  Company Number: JP-ALLERGAN-1007168US

PATIENT
  Age: 71 Year
  Sex: Male

DRUGS (8)
  1. LATANOPROST [Concomitant]
     Dosage: UNK
     Route: 047
     Dates: end: 20100113
  2. DIAMOX SRC [Concomitant]
     Dosage: 250 MG, UNKNOWN
  3. RYSMON TG [Concomitant]
     Dosage: 1 GTT, QD
     Route: 047
     Dates: end: 20100113
  4. LUMIGAN [Suspect]
     Dosage: 1 GTT, QD
     Route: 047
  5. LUMIGAN [Suspect]
     Indication: GLAUCOMA
     Dosage: 1 GTT, QD
     Route: 047
     Dates: start: 20100113, end: 20100224
  6. AZOPT [Concomitant]
     Dosage: 1 GTT, BID
     Route: 047
     Dates: end: 20100113
  7. ASPARA K [Concomitant]
     Dosage: 300 MG, UNKNOWN
  8. TIMOPTOL-XE [Concomitant]
     Dosage: UNK
     Dates: start: 20100113

REACTIONS (3)
  - VISUAL ACUITY REDUCED [None]
  - VITREOUS HAEMORRHAGE [None]
  - INTRAOCULAR PRESSURE INCREASED [None]
